FAERS Safety Report 16039332 (Version 6)
Quarter: 2019Q3

REPORT INFORMATION
  Report Type: Spontaneous
  Country: US (occurrence: US)
  Receive Date: 20190306
  Receipt Date: 20190930
  Transmission Date: 20191004
  Serious: Yes (Hospitalization, Other)
  Sender: FDA-Public Use
  Company Number: US-PFIZER INC-2019094835

PATIENT
  Age: 81 Year
  Sex: Female

DRUGS (1)
  1. XELJANZ XR [Suspect]
     Active Substance: TOFACITINIB CITRATE
     Dosage: 11 MG, UNK
     Dates: start: 201901, end: 2019

REACTIONS (6)
  - Cardiac disorder [Unknown]
  - Influenza [Unknown]
  - Myocardial infarction [Unknown]
  - Vomiting [Unknown]
  - Cholecystitis infective [Unknown]
  - Infection [Unknown]

NARRATIVE: CASE EVENT DATE: 2019
